FAERS Safety Report 15811097 (Version 1)
Quarter: 2019Q1

REPORT INFORMATION
  Report Type: Spontaneous
  Country: US (occurrence: US)
  Receive Date: 20190111
  Receipt Date: 20190111
  Transmission Date: 20190417
  Serious: Yes (Hospitalization, Other)
  Sender: FDA-Public Use
  Company Number: US-AUROBINDO-AUR-APL-2019-000202

PATIENT
  Age: 12 Year
  Sex: Female

DRUGS (1)
  1. IBUPROFEN. [Suspect]
     Active Substance: IBUPROFEN
     Indication: HEADACHE
     Dosage: 600 MILLIGRAM, EVERY FOUR HOUR (SIX TIMES A DAY)
     Route: 065

REACTIONS (8)
  - Lyme disease [Recovering/Resolving]
  - Self-medication [Recovering/Resolving]
  - Papilloedema [Recovered/Resolved]
  - Overdose [Recovering/Resolving]
  - Retinal detachment [Recovered/Resolved]
  - Tubulointerstitial nephritis and uveitis syndrome [Recovering/Resolving]
  - Chronic kidney disease [Not Recovered/Not Resolved]
  - Choroiditis [Recovered/Resolved]
